FAERS Safety Report 16452623 (Version 1)
Quarter: 2019Q2

REPORT INFORMATION
  Report Type: Spontaneous
  Country: US (occurrence: US)
  Receive Date: 20190509
  Receipt Date: 20190509
  Transmission Date: 20190711
  Serious: No
  Sender: FDA-Public Use
  Company Number: None

PATIENT
  Age: 48 Year
  Sex: Male

DRUGS (13)
  1. OPSUMIT [Suspect]
     Active Substance: MACITENTAN
     Indication: PULMONARY HYPERTENSION
     Route: 048
     Dates: start: 201902
  2. VENTOLIN HFA [Concomitant]
     Active Substance: ALBUTEROL SULFATE
  3. ASPIRIN. [Concomitant]
     Active Substance: ASPIRIN
  4. SPIRIVA RESPIMAT [Concomitant]
     Active Substance: TIOTROPIUM BROMIDE
  5. VITAMIN D3 [Concomitant]
     Active Substance: CHOLECALCIFEROL
  6. DEXTROMATHORPHAN [Concomitant]
  7. SILDONAFIL [Concomitant]
  8. PREDNISONE. [Concomitant]
     Active Substance: PREDNISONE
  9. XALATON [Concomitant]
  10. FISH OIL [Concomitant]
     Active Substance: FISH OIL
  11. ATORVASTATIN [Concomitant]
     Active Substance: ATORVASTATIN
  12. ADVAIR DISKUS [Concomitant]
     Active Substance: FLUTICASONE PROPIONATE\SALMETEROL XINAFOATE
  13. REFRESH TEARS [Concomitant]
     Active Substance: CARBOXYMETHYLCELLULOSE SODIUM

REACTIONS (7)
  - Hypoxia [None]
  - Dizziness [None]
  - Fluid overload [None]
  - Dyspnoea [None]
  - Pneumonia [None]
  - Idiopathic pulmonary fibrosis [None]
  - Condition aggravated [None]

NARRATIVE: CASE EVENT DATE: 20190414
